FAERS Safety Report 6423450-0 (Version None)
Quarter: 2009Q4

REPORT INFORMATION
  Report Type: 
  Country: None (occurrence: None)
  Receive Date: 20091102
  Receipt Date: 20091021
  Transmission Date: 20100525
  Serious: Yes (Other)
  Sender: FDA-Public Use
  Company Number: B0599258A

PATIENT
  Age: 65 Year
  Sex: Female

DRUGS (1)
  1. ZELITREX [Suspect]
     Indication: ANTIVIRAL PROPHYLAXIS
     Dosage: 500MG TWICE PER DAY
     Route: 048

REACTIONS (2)
  - NEUROPATHY PERIPHERAL [None]
  - OFF LABEL USE [None]
